FAERS Safety Report 9159952 (Version 2)
Quarter: 2013Q2

REPORT INFORMATION
  Report Type: Spontaneous
  Country: US (occurrence: None)
  Receive Date: 20130214
  Receipt Date: 20130626
  Transmission Date: 20140414
  Serious: Yes (Disabling, Other)
  Sender: FDA-Public Use
  Company Number: ACO_33915_2012

PATIENT
  Age: 60 Year
  Sex: Male

DRUGS (5)
  1. AMPYRA [Suspect]
     Indication: GAIT DISTURBANCE
     Dates: start: 20100504, end: 20100518
  2. METOPROLOL (METOPROLOL TARTRATE) [Concomitant]
  3. PAXIL (PAROXETINE HYDROCHLORIDE) [Concomitant]
  4. AMLODIPINE (AMLODIPINE BESILATE) [Concomitant]
  5. BACLOFEN [Concomitant]

REACTIONS (8)
  - Abasia [None]
  - Back pain [None]
  - Musculoskeletal pain [None]
  - Musculoskeletal pain [None]
  - Pain in extremity [None]
  - Pain in extremity [None]
  - Muscular weakness [None]
  - Drug ineffective [None]
